FAERS Safety Report 15752277 (Version 4)
Quarter: 2020Q2

REPORT INFORMATION
  Report Type: Report from Study
  Country: CN (occurrence: CN)
  Receive Date: 20181221
  Receipt Date: 20200527
  Transmission Date: 20200713
  Serious: Yes (Hospitalization)
  Sender: FDA-Public Use
  Company Number: CN-EISAI MEDICAL RESEARCH-EC-2018-049540

PATIENT
  Age: 49 Year
  Sex: Female
  Weight: 46 kg

DRUGS (9)
  1. PIPAZHIKEKELI [Concomitant]
  2. VITAMIN B6 [Concomitant]
     Active Substance: PYRIDOXINE HYDROCHLORIDE
  3. VITAMIN C [Concomitant]
     Active Substance: ASCORBIC ACID
  4. PLACEBO [Suspect]
     Active Substance: UNSPECIFIED INGREDIENT
     Indication: THYROID CANCER
     Route: 048
     Dates: start: 20170929, end: 20190807
  5. GLYCEROL FRUCTOSE SODIUM CHLORIDE [Concomitant]
  6. CEFRADINE [Concomitant]
     Active Substance: CEPHRADINE
  7. ZOLEDRONIC ACID [Concomitant]
     Active Substance: ZOLEDRONIC ACID
  8. MANNITOL. [Concomitant]
     Active Substance: MANNITOL
  9. LEFT THYROXINE SODIUM TABLETS [Concomitant]

REACTIONS (2)
  - Haemoptysis [Recovered/Resolved]
  - Metastases to central nervous system [Recovering/Resolving]

NARRATIVE: CASE EVENT DATE: 20181206
